FAERS Safety Report 5084966-5 (Version None)
Quarter: 2006Q3

REPORT INFORMATION
  Report Type: 
  Country: None (occurrence: None)
  Receive Date: 20060821
  Receipt Date: 20060811
  Transmission Date: 20061208
  Serious: Yes (Hospitalization)
  Sender: FDA-Public Use
  Company Number: IN-ABBOTT-06P-078-0340272-00

PATIENT
  Age: 67 Year
  Sex: Female

DRUGS (3)
  1. VALPARIN [Suspect]
     Indication: CONVULSION
     Route: 048
  2. CLOBAZAM [Concomitant]
     Indication: CONVULSION
     Route: 048
  3. TOPIRAMATE [Concomitant]
     Indication: DRUG USE FOR UNKNOWN INDICATION
     Route: 048

REACTIONS (4)
  - COMA [None]
  - ENCEPHALOPATHY [None]
  - LIMB DISCOMFORT [None]
  - SENSORY LOSS [None]
